FAERS Safety Report 15459901 (Version 1)
Quarter: 2018Q4

REPORT INFORMATION
  Report Type: Spontaneous
  Country: DE (occurrence: DE)
  Receive Date: 20181003
  Receipt Date: 20181003
  Transmission Date: 20190204
  Serious: Yes (Other)
  Sender: FDA-Public Use
  Company Number: DE-GUERBET-DE-20180105

PATIENT
  Age: 50 Year
  Sex: Female
  Weight: 113 kg

DRUGS (2)
  1. CORTISONE [Concomitant]
     Active Substance: CORTISONE\HYDROCORTISONE
     Indication: BACK PAIN
     Route: 030
     Dates: start: 20180903
  2. DOTAREM [Suspect]
     Active Substance: GADOTERATE MEGLUMINE
     Indication: NUCLEAR MAGNETIC RESONANCE IMAGING
     Route: 042
     Dates: start: 20180830, end: 20180830

REACTIONS (2)
  - Hypersensitivity [Not Recovered/Not Resolved]
  - General physical condition abnormal [Not Recovered/Not Resolved]

NARRATIVE: CASE EVENT DATE: 20180831
